FAERS Safety Report 24240368 (Version 1)
Quarter: 2024Q3

REPORT INFORMATION
  Report Type: Report from Study
  Country: US (occurrence: US)
  Receive Date: 20240822
  Receipt Date: 20240822
  Transmission Date: 20241017
  Serious: Yes (Hospitalization, Other)
  Sender: ABBVIE
  Company Number: US-ABBVIE-5874094

PATIENT
  Sex: Male

DRUGS (1)
  1. HUMIRA [Suspect]
     Active Substance: ADALIMUMAB
     Indication: Product used for unknown indication
     Dosage: DRUG END DATE 2024
     Route: 058
     Dates: start: 20240316

REACTIONS (3)
  - Illness [Recovering/Resolving]
  - Sepsis [Unknown]
  - Cellulitis [Unknown]

NARRATIVE: CASE EVENT DATE: 20240101
